FAERS Safety Report 16077150 (Version 1)
Quarter: 2019Q1

REPORT INFORMATION
  Report Type: Spontaneous
  Country: PL (occurrence: PL)
  Receive Date: 20190315
  Receipt Date: 20190315
  Transmission Date: 20190418
  Serious: Yes (Other)
  Sender: FDA-Public Use
  Company Number: PL-TEVA-2019-PL-1023936

PATIENT
  Age: 69 Year
  Sex: Female

DRUGS (2)
  1. ZERLINDA [Suspect]
     Active Substance: ZOLEDRONIC ACID
     Indication: BREAST CANCER FEMALE
  2. ZERLINDA [Suspect]
     Active Substance: ZOLEDRONIC ACID
     Indication: METASTASES TO BONE
     Dosage: UNIT DOSE: 4/100 MG/ML
     Dates: start: 20190214, end: 20190214

REACTIONS (5)
  - Haematuria [Recovered/Resolved]
  - Palpitations [Recovered/Resolved]
  - Chills [Not Recovered/Not Resolved]
  - Product substitution issue [Unknown]
  - Cough [Recovered/Resolved]

NARRATIVE: CASE EVENT DATE: 20190214
